FAERS Safety Report 14100032 (Version 5)
Quarter: 2020Q2

REPORT INFORMATION
  Report Type: Spontaneous
  Country: CA (occurrence: CA)
  Receive Date: 20171017
  Receipt Date: 20200610
  Transmission Date: 20200713
  Serious: Yes (Other)
  Sender: FDA-Public Use
  Company Number: CA-PFIZER INC-2017103992

PATIENT
  Age: 44 Year
  Sex: Female
  Weight: 68 kg

DRUGS (2)
  1. XELJANZ [Suspect]
     Active Substance: TOFACITINIB CITRATE
     Indication: RHEUMATOID ARTHRITIS
     Dosage: 5 MG, 2X/DAY (AT 5AM AND 5PM)
     Route: 048
     Dates: start: 20170201
  2. METHOTREXATE SODIUM. [Suspect]
     Active Substance: METHOTREXATE SODIUM
     Indication: RHEUMATOID ARTHRITIS
     Dosage: 20 MG, WEEKLY
     Route: 058
     Dates: end: 2017

REACTIONS (16)
  - Glaucoma [Unknown]
  - Arthralgia [Recovered/Resolved]
  - Eye disorder [Unknown]
  - Pain [Unknown]
  - Malaise [Unknown]
  - Feeding disorder [Unknown]
  - Pain in extremity [Recovered/Resolved]
  - Dyspepsia [Unknown]
  - Synovial cyst [Unknown]
  - Fatigue [Recovered/Resolved]
  - Overweight [Unknown]
  - Depression [Recovered/Resolved]
  - Joint injury [Recovered/Resolved]
  - Therapeutic product effect incomplete [Unknown]
  - Product dose omission [Unknown]
  - Erythema [Unknown]

NARRATIVE: CASE EVENT DATE: 201702
